FAERS Safety Report 8050959-9 (Version None)
Quarter: 2012Q1

REPORT INFORMATION
  Report Type: 
  Country: None (occurrence: None)
  Receive Date: 20120117
  Receipt Date: 20120111
  Transmission Date: 20120608
  Serious: Yes (Hospitalization)
  Sender: FDA-Public Use
  Company Number: PHEH2011US009930

PATIENT
  Sex: Female

DRUGS (2)
  1. EXJADE [Suspect]
     Dosage: 750 MG, QD
     Route: 048
  2. EXJADE [Suspect]
     Dosage: 750 MG, QD
     Route: 048

REACTIONS (4)
  - FRACTURE [None]
  - MALAISE [None]
  - ABDOMINAL PAIN [None]
  - ABDOMINAL DISCOMFORT [None]
